FAERS Safety Report 4840086-3 (Version None)
Quarter: 2005Q4

REPORT INFORMATION
  Report Type: 
  Country: None (occurrence: None)
  Receive Date: 20051125
  Receipt Date: 20051114
  Transmission Date: 20060501
  Serious: No
  Sender: FDA-Public Use
  Company Number: 2005P1000537

PATIENT
  Age: 31 Year
  Sex: Male

DRUGS (1)
  1. RETEPLASE (RETEPLASE) [Suspect]
     Indication: PULMONARY EMBOLISM
     Dosage: 10 IU; IV
     Route: 042
     Dates: start: 20050201, end: 20050201

REACTIONS (4)
  - FIBRINOLYSIS [None]
  - HAEMANGIOMA [None]
  - HEPATIC RUPTURE [None]
  - PERITONEAL HAEMORRHAGE [None]
